FAERS Safety Report 14236685 (Version 1)
Quarter: 2017Q4

REPORT INFORMATION
  Report Type: Spontaneous
  Country: FR (occurrence: FR)
  Receive Date: 20171129
  Receipt Date: 20171129
  Transmission Date: 20180321
  Serious: Yes (Hospitalization, Other)
  Sender: FDA-Public Use
  Company Number: FR-ELI_LILLY_AND_COMPANY-FR201711008509

PATIENT
  Age: 2 Month
  Weight: 3.4 kg

DRUGS (3)
  1. ZYPREXA [Suspect]
     Active Substance: OLANZAPINE
     Indication: BIPOLAR DISORDER
     Dosage: 1 DF, DAILY
     Route: 064
     Dates: start: 201612
  2. ANAFRANIL [Suspect]
     Active Substance: CLOMIPRAMINE HYDROCHLORIDE
     Indication: BIPOLAR DISORDER
     Dosage: 1 DF, DAILY
     Route: 064
  3. ABILIFY [Suspect]
     Active Substance: ARIPIPRAZOLE
     Indication: BIPOLAR DISORDER
     Dosage: UNK, UNKNOWN
     Route: 064
     Dates: end: 201612

REACTIONS (5)
  - Foetal heart rate abnormal [Unknown]
  - Torticollis [Recovering/Resolving]
  - Hypertension [Unknown]
  - Exposure during pregnancy [Unknown]
  - Plagiocephaly [Unknown]

NARRATIVE: CASE EVENT DATE: 201709
